FAERS Safety Report 4410654-1 (Version None)
Quarter: 2004Q3

REPORT INFORMATION
  Report Type: 
  Country: None (occurrence: None)
  Receive Date: 20040726
  Receipt Date: 20040715
  Transmission Date: 20050211
  Serious: Yes (Hospitalization)
  Sender: FDA-Public Use
  Company Number: 04P-167-0267290-00

PATIENT
  Age: 20 Year
  Sex: Female

DRUGS (4)
  1. VALPROATE SODIUM [Suspect]
     Dosage: 1 GM, 2 IN 1 D, ORAL
     Route: 048
     Dates: start: 20000101, end: 20040410
  2. LITHIUM CARBONATE [Suspect]
     Dosage: 400 MG, 2 IN 1 D, ORAL
     Route: 048
     Dates: start: 20000101, end: 20040101
  3. CLOZAPINE [Suspect]
     Indication: SCHIZOPHRENIA
     Dosage: 200 MG, 1 IN 1 D, ORAL
     Route: 048
     Dates: start: 20040319, end: 20040101
  4. CLONAZEPAM [Concomitant]

REACTIONS (11)
  - BACK PAIN [None]
  - ENCEPHALOPATHY [None]
  - NEUTROPHIL COUNT INCREASED [None]
  - PYELONEPHRITIS [None]
  - RENAL FAILURE ACUTE [None]
  - SCHIZOPHRENIA [None]
  - SEPSIS [None]
  - SOMNOLENCE [None]
  - THERAPEUTIC AGENT TOXICITY [None]
  - URINARY TRACT INFECTION [None]
  - WHITE BLOOD CELL COUNT INCREASED [None]
